FAERS Safety Report 21576577 (Version 3)
Quarter: 2023Q2

REPORT INFORMATION
  Report Type: Other
  Country: IN (occurrence: None)
  Receive Date: 20221110
  Receipt Date: 20230430
  Transmission Date: 20230721
  Serious: Yes (Hospitalization)
  Sender: FDA-Public Use
  Company Number: IN-ROCHE-3215218

PATIENT
  Age: 36 Year
  Sex: Male

DRUGS (1)
  1. MYCOPHENOLATE MOFETIL [Suspect]
     Active Substance: MYCOPHENOLATE MOFETIL
     Indication: Renal transplant
     Route: 048
     Dates: start: 20100629

REACTIONS (2)
  - Anaemia [Recovered/Resolved]
  - Haemoglobin decreased [Recovered/Resolved]
